FAERS Safety Report 20951749 (Version 2)
Quarter: 2022Q4

REPORT INFORMATION
  Report Type: Spontaneous
  Country: US (occurrence: US)
  Receive Date: 20220613
  Receipt Date: 20221121
  Transmission Date: 20230112
  Serious: Yes (Other)
  Sender: FDA-Public Use
  Company Number: US-BRACCO-2022US02215

PATIENT
  Age: 66 Year
  Sex: Male

DRUGS (12)
  1. LUMASON [Suspect]
     Active Substance: SULFUR HEXAFLUORIDE
     Indication: Echocardiogram
     Dosage: 2 ML, SINGLE
     Route: 042
     Dates: start: 20220606, end: 20220606
  2. LUMASON [Suspect]
     Active Substance: SULFUR HEXAFLUORIDE
     Indication: Echocardiogram
     Dosage: 2 ML, SINGLE
     Route: 042
     Dates: start: 20220606, end: 20220606
  3. LUMASON [Suspect]
     Active Substance: SULFUR HEXAFLUORIDE
     Indication: Echocardiogram
     Dosage: 2 ML, SINGLE
     Route: 042
     Dates: start: 20220606, end: 20220606
  4. ESCITALOPRAM [Concomitant]
     Active Substance: ESCITALOPRAM OXALATE
  5. VITAMINS NOS [Concomitant]
     Active Substance: VITAMINS
  6. ATORVASTATIN CALCIUM [Concomitant]
     Active Substance: ATORVASTATIN CALCIUM
  7. OMEPRAZOLE [Concomitant]
     Active Substance: OMEPRAZOLE
  8. CYANOCOBALAMIN [Concomitant]
     Active Substance: CYANOCOBALAMIN
  9. VENTIL [SALBUTAMOL] [Concomitant]
  10. FUROSEMIDE [Concomitant]
     Active Substance: FUROSEMIDE
  11. ELIQUIS [Concomitant]
     Active Substance: APIXABAN
  12. METOPROLOL [Concomitant]
     Active Substance: METOPROLOL

REACTIONS (4)
  - Oxygen saturation decreased [Recovered/Resolved]
  - Hyperhidrosis [Recovered/Resolved]
  - Pallor [Recovered/Resolved]
  - Cough [Recovered/Resolved]

NARRATIVE: CASE EVENT DATE: 20220606
